FAERS Safety Report 7805304-8 (Version None)
Quarter: 2011Q4

REPORT INFORMATION
  Report Type: 
  Country: None (occurrence: None)
  Receive Date: 20111010
  Receipt Date: 20111006
  Transmission Date: 20120403
  Serious: Yes (Other)
  Sender: FDA-Public Use
  Company Number: DE-PFIZER INC-2011238496

PATIENT
  Age: 66 Year
  Sex: Male

DRUGS (1)
  1. NORVASC [Suspect]
     Dosage: 5 MG, UNK

REACTIONS (1)
  - CEREBROVASCULAR ACCIDENT [None]
